FAERS Safety Report 8258004-7 (Version None)
Quarter: 2012Q2

REPORT INFORMATION
  Report Type: 
  Country: None (occurrence: None)
  Receive Date: 20120404
  Receipt Date: 20120326
  Transmission Date: 20120825
  Serious: Yes (Hospitalization)
  Sender: FDA-Public Use
  Company Number: US-BAYER-2011-062502

PATIENT
  Age: 24 Year
  Sex: Female
  Weight: 176.87 kg

DRUGS (6)
  1. DROSPIRENONE AND ETHINYL ESTRADIOL [Suspect]
     Dosage: UNK
     Dates: start: 20071201, end: 20090601
  2. ABILIFY [Concomitant]
     Indication: DEPRESSION
     Dosage: UNK
     Dates: start: 20070101
  3. VALIUM [Concomitant]
     Indication: ANXIETY
     Dosage: UNK
     Dates: start: 20040101
  4. ADDERALL 5 [Concomitant]
     Indication: DEPRESSION
     Dosage: UNK
     Dates: start: 20080101, end: 20110101
  5. SYNTHROID [Concomitant]
     Indication: HYPOTHYROIDISM
     Dosage: UNK
     Dates: start: 20040101
  6. YASMIN [Suspect]
     Dosage: UNK
     Dates: start: 20071201, end: 20090601

REACTIONS (8)
  - EMOTIONAL DISTRESS [None]
  - PAIN [None]
  - DEEP VEIN THROMBOSIS [None]
  - PULMONARY EMBOLISM [None]
  - INJURY [None]
  - FEAR [None]
  - ANXIETY [None]
  - PSYCHOLOGICAL TRAUMA [None]
